FAERS Safety Report 20727580 (Version 1)
Quarter: 2022Q2

REPORT INFORMATION
  Report Type: Other
  Country: US (occurrence: None)
  Receive Date: 20220419
  Receipt Date: 20220419
  Transmission Date: 20220721
  Serious: No
  Sender: FDA-Public Use
  Company Number: US-ROCHE-2902682

PATIENT
  Age: 67 Year
  Sex: Male

DRUGS (6)
  1. BEVACIZUMAB [Suspect]
     Active Substance: BEVACIZUMAB
     Indication: Neovascular age-related macular degeneration
     Route: 050
  2. PREDNISOLONE ACETATE [Concomitant]
     Active Substance: PREDNISOLONE ACETATE
  3. VANCOMYCIN [Concomitant]
     Active Substance: VANCOMYCIN
     Route: 050
  4. CEFTAZIDIME [Concomitant]
     Active Substance: CEFTAZIDIME
     Route: 050
  5. PREDNISONE [Concomitant]
     Active Substance: PREDNISONE
     Route: 048
  6. ACYCLOVIR [Concomitant]
     Active Substance: ACYCLOVIR

REACTIONS (5)
  - Eye disorder [Recovered/Resolved]
  - Hypotony of eye [Recovered/Resolved]
  - Ciliary body disorder [Recovered/Resolved]
  - Off label use [Unknown]
  - Off label use [Unknown]
